FAERS Safety Report 6235391-2 (Version None)
Quarter: 2009Q2

REPORT INFORMATION
  Report Type: 
  Country: None (occurrence: None)
  Receive Date: 20090618
  Receipt Date: 20081112
  Transmission Date: 20091009
  Serious: No
  Sender: FDA-Public Use
  Company Number: US-ASTRAZENECA-2008UW25347

PATIENT
  Age: 83 Year
  Sex: Male

DRUGS (4)
  1. ENTOCORT EC [Suspect]
     Indication: CROHN'S DISEASE
     Route: 048
     Dates: start: 20080513
  2. GENERIC LORTAB [Concomitant]
  3. VALIUM [Concomitant]
  4. DONNATAL [Concomitant]

REACTIONS (3)
  - DISCOMFORT [None]
  - HYPERSENSITIVITY [None]
  - RASH PRURITIC [None]
